FAERS Safety Report 16676386 (Version 2)
Quarter: 2019Q3

REPORT INFORMATION
  Report Type: Spontaneous
  Country: ES (occurrence: ES)
  Receive Date: 20190807
  Receipt Date: 20190828
  Transmission Date: 20191004
  Serious: Yes (Other)
  Sender: FDA-Public Use
  Company Number: ES-ASTRAZENECA-2019SF09889

PATIENT
  Age: 67 Year
  Sex: Male
  Weight: 90 kg

DRUGS (3)
  1. SYMBICORT [Suspect]
     Active Substance: BUDESONIDE\FORMOTEROL FUMARATE DIHYDRATE
     Indication: SEASONAL ALLERGY
     Dosage: 2 DF, EVERY 12 HOURS
     Route: 055
     Dates: start: 1985, end: 201604
  2. ZAMENE [Concomitant]
     Active Substance: DEFLAZACORT
     Indication: RHEUMATOID ARTHRITIS
     Dosage: 30.0MG UNKNOWN
     Route: 048
  3. ADENURIC [Concomitant]
     Active Substance: FEBUXOSTAT
     Indication: GOUT
     Dosage: 80.0MG UNKNOWN
     Route: 048
     Dates: start: 2013

REACTIONS (3)
  - Tooth loss [Recovered/Resolved]
  - Off label use of device [Unknown]
  - Product use in unapproved indication [Unknown]

NARRATIVE: CASE EVENT DATE: 1995
